FAERS Safety Report 20841493 (Version 1)
Quarter: 2022Q2

REPORT INFORMATION
  Report Type: Spontaneous
  Country: IN (occurrence: IN)
  Receive Date: 20220518
  Receipt Date: 20220518
  Transmission Date: 20220721
  Serious: Yes (Death, Life-Threatening, Hospitalization)
  Sender: FDA-Public Use
  Company Number: IN-STRIDES ARCOLAB LIMITED-2022SP005541

PATIENT
  Age: 67 Year
  Sex: Male

DRUGS (1)
  1. DEXAMETHASONE [Suspect]
     Active Substance: DEXAMETHASONE
     Indication: COVID-19
     Dosage: 8 MILLIGRAM SCHEDULED TO RECEIVE FOR 21 DAYS
     Route: 065

REACTIONS (5)
  - Respiratory distress [Fatal]
  - Pulmonary mucormycosis [Fatal]
  - Aspergillus infection [Fatal]
  - Pneumonia klebsiella [Fatal]
  - Off label use [Unknown]
